FAERS Safety Report 25184635 (Version 1)
Quarter: 2025Q2

REPORT INFORMATION
  Report Type: Spontaneous
  Country: US (occurrence: US)
  Receive Date: 20250410
  Receipt Date: 20250410
  Transmission Date: 20250717
  Serious: No
  Sender: NOVO NORDISK
  Company Number: US-NOVOPROD-1276661

PATIENT
  Sex: Female

DRUGS (1)
  1. GLUCAGEN HYPOKIT [Suspect]
     Active Substance: GLUCAGON HYDROCHLORIDE
     Indication: Product used for unknown indication
     Route: 058

REACTIONS (2)
  - Diabetic retinopathy [Unknown]
  - Wrong technique in product usage process [Unknown]
